FAERS Safety Report 10779005 (Version 1)
Quarter: 2015Q1

REPORT INFORMATION
  Report Type: Spontaneous
  Country: US (occurrence: US)
  Receive Date: 20150210
  Receipt Date: 20150210
  Transmission Date: 20150721
  Serious: No
  Sender: FDA-Public Use
  Company Number: US-009507513-1502USA002991

PATIENT
  Sex: Female

DRUGS (2)
  1. ASTELIN (AZELASTINE HYDROCHLORIDE) [Concomitant]
     Active Substance: AZELASTINE HYDROCHLORIDE
     Indication: DEPRESSION
  2. ASMANEX [Suspect]
     Active Substance: MOMETASONE FUROATE
     Route: 055

REACTIONS (1)
  - Depression [Unknown]
